FAERS Safety Report 4507034-7 (Version None)
Quarter: 2004Q4

REPORT INFORMATION
  Report Type: 
  Country: None (occurrence: None)
  Receive Date: 20041122
  Receipt Date: 20041112
  Transmission Date: 20050328
  Serious: Yes (Other)
  Sender: FDA-Public Use
  Company Number: GB-MERCK-0411GBR00135

PATIENT
  Age: 63 Year
  Sex: Male

DRUGS (6)
  1. ZOCOR [Suspect]
     Route: 048
  2. ALBUTEROL [Suspect]
     Indication: ASTHMA
     Route: 065
  3. MESALAMINE [Concomitant]
     Route: 048
  4. BECLOMETHASONE DIPROPIONATE [Concomitant]
     Route: 055
  5. DOXEPIN HYDROCHLORIDE [Concomitant]
     Route: 048
  6. SALMETEROL XINAFOATE [Concomitant]
     Route: 055

REACTIONS (1)
  - PAROTID GLAND ENLARGEMENT [None]
